FAERS Safety Report 5813208-5 (Version None)
Quarter: 2008Q3

REPORT INFORMATION
  Report Type: 
  Country: None (occurrence: None)
  Receive Date: 20080717
  Receipt Date: 20080416
  Transmission Date: 20090109
  Serious: No
  Sender: FDA-Public Use
  Company Number: A0723083A

PATIENT
  Age: 35 Year
  Sex: Female

DRUGS (2)
  1. NICORETTE [Suspect]
     Dates: start: 20080415
  2. NICODERM CQ [Suspect]

REACTIONS (6)
  - FEELING JITTERY [None]
  - INTENTIONAL DRUG MISUSE [None]
  - NAUSEA [None]
  - OVERDOSE [None]
  - PARAESTHESIA ORAL [None]
  - RETCHING [None]
